FAERS Safety Report 8652517 (Version 3)
Quarter: 2012Q4

REPORT INFORMATION
  Report Type: Report from Study
  Country: JP (occurrence: JP)
  Receive Date: 20120706
  Receipt Date: 20120913
  Transmission Date: 20130627
  Serious: Yes (Death)
  Sender: FDA-Public Use
  Company Number: JP-PFIZER INC-2012158689

PATIENT
  Age: 77 Year
  Sex: Male

DRUGS (2)
  1. TORISEL [Suspect]
     Indication: RENAL CELL CARCINOMA
     Dosage: 20 mg, weekly
     Route: 041
     Dates: end: 20110623
  2. BROTIZOLAM [Concomitant]
     Dosage: UNK

REACTIONS (2)
  - Disease progression [Fatal]
  - Renal cell carcinoma [Fatal]
